FAERS Safety Report 6213849-X (Version None)
Quarter: 2009Q2

REPORT INFORMATION
  Report Type: 
  Country: None (occurrence: None)
  Receive Date: 20090601
  Receipt Date: 20090601
  Transmission Date: 20091009
  Serious: Yes (Life-Threatening, Hospitalization, Disabling)
  Sender: FDA-Public Use
  Company Number: None

PATIENT
  Age: 9 Year
  Sex: Female
  Weight: 23.1334 kg

DRUGS (3)
  1. IBUPROFEN [Suspect]
     Indication: PYREXIA
     Dosage: 2 TSP. 6-8 HOUS PO
     Route: 048
     Dates: start: 20090424, end: 20090507
  2. AZITHROMYCIN [Suspect]
     Indication: PHARYNGITIS STREPTOCOCCAL
     Dosage: 1 TSP. ONCE DAILY PO
     Route: 048
     Dates: start: 20090505, end: 20090507
  3. AZITHROMYCIN [Suspect]
     Indication: VIRAL INFECTION
     Dosage: 1 TSP. ONCE DAILY PO
     Route: 048
     Dates: start: 20090505, end: 20090507

REACTIONS (6)
  - DEHYDRATION [None]
  - FEEDING DISORDER [None]
  - FLUID INTAKE REDUCED [None]
  - PNEUMONIA MYCOPLASMAL [None]
  - STEVENS-JOHNSON SYNDROME [None]
  - URTICARIA [None]
